FAERS Safety Report 25642230 (Version 2)
Quarter: 2025Q3

REPORT INFORMATION
  Report Type: Spontaneous
  Country: US (occurrence: US)
  Receive Date: 20250805
  Receipt Date: 20250825
  Transmission Date: 20251020
  Serious: Yes (Life-Threatening, Hospitalization)
  Sender: TEVA
  Company Number: US-TEVA-VS-3358014

PATIENT
  Age: 33 Year
  Sex: Male

DRUGS (4)
  1. LOPERAMIDE [Suspect]
     Active Substance: LOPERAMIDE
     Indication: Prophylaxis
     Dosage: RECEIVING 120-140 TABLETS (240-280 MG)
     Route: 065
  2. LIDOCAINE [Suspect]
     Active Substance: LIDOCAINE
     Indication: Ventricular arrhythmia
     Route: 065
  3. NALOXONE [Concomitant]
     Active Substance: NALOXONE
     Indication: Depressed level of consciousness
     Route: 065
  4. CEFAZOLIN [Concomitant]
     Active Substance: CEFAZOLIN
     Indication: Staphylococcal bacteraemia
     Route: 065

REACTIONS (6)
  - Drug abuse [Unknown]
  - Seizure [Unknown]
  - Intentional overdose [Unknown]
  - Cardiotoxicity [Unknown]
  - Ventricular arrhythmia [Unknown]
  - Torsade de pointes [Unknown]
